FAERS Safety Report 4796207-4 (Version None)
Quarter: 2005Q4

REPORT INFORMATION
  Report Type: 
  Country: None (occurrence: None)
  Receive Date: 20051006
  Receipt Date: 20051006
  Transmission Date: 20060501
  Serious: Yes (Disabling)
  Sender: FDA-Public Use
  Company Number: None

PATIENT
  Age: 58 Year
  Sex: Male
  Weight: 68.0396 kg

DRUGS (3)
  1. ZOMETA [Suspect]
     Indication: MULTIPLE MYELOMA
  2. AREDIA [Suspect]
     Indication: HYPERCALCAEMIA
  3. CHEMOTHERAPY [Concomitant]

REACTIONS (2)
  - BREAST NECROSIS [None]
  - JAW DISORDER [None]
